FAERS Safety Report 9216074 (Version 2)
Quarter: 2013Q4

REPORT INFORMATION
  Report Type: Spontaneous
  Country: US (occurrence: US)
  Receive Date: 20130408
  Receipt Date: 20131111
  Transmission Date: 20140711
  Serious: Yes (Hospitalization, Other)
  Sender: FDA-Public Use
  Company Number: US-BAYER-2013-042657

PATIENT
  Age: 24 Year
  Sex: Female
  Weight: 84.35 kg

DRUGS (2)
  1. YASMIN [Suspect]
     Indication: CONTRACEPTION
     Dosage: UNK
     Dates: start: 2006
  2. HYDROCODONE W/APAP [Concomitant]
     Dosage: 5-325
     Route: 048
     Dates: start: 20110303

REACTIONS (6)
  - Cholecystectomy [None]
  - Biliary dyskinesia [None]
  - Cholecystitis [None]
  - Injury [None]
  - Pain [None]
  - Pain [None]
